FAERS Safety Report 9138167 (Version 4)
Quarter: 2013Q2

REPORT INFORMATION
  Report Type: Spontaneous
  Country: US (occurrence: US)
  Receive Date: 20130304
  Receipt Date: 20130517
  Transmission Date: 20140414
  Serious: Yes (Hospitalization, Other)
  Sender: FDA-Public Use
  Company Number: US-009507513-1204USA02196

PATIENT
  Sex: Female

DRUGS (6)
  1. FOSAMAX [Suspect]
     Indication: OSTEOPENIA
     Dosage: 10 MG, QD
     Route: 048
     Dates: start: 199809, end: 200110
  2. FOSAMAX [Suspect]
     Dosage: 70 MG, QW
     Route: 048
     Dates: start: 200110, end: 200605
  3. VITAMINS (UNSPECIFIED) [Concomitant]
     Dosage: UNK
     Dates: start: 1990
  4. CALCIUM (UNSPECIFIED) [Concomitant]
     Dosage: 1000 MG, BID
     Dates: start: 1990
  5. CHOLECALCIFEROL [Concomitant]
     Dosage: 1000 MG, BID
     Dates: start: 1990
  6. HORMONES (UNSPECIFIED) [Concomitant]
     Dosage: UNK UNK, UNKNOWN
     Dates: start: 1998, end: 2006

REACTIONS (14)
  - Femur fracture [Unknown]
  - Femur fracture [Unknown]
  - Intramedullary rod insertion [Unknown]
  - Femoral neck fracture [Recovering/Resolving]
  - Intramedullary rod insertion [Unknown]
  - Fall [Unknown]
  - Depression [Unknown]
  - Anxiety [Unknown]
  - Spondylitis [Unknown]
  - Cholelithiasis [Unknown]
  - Transaminases increased [Unknown]
  - Bursitis [Unknown]
  - Sleep disorder [Unknown]
  - Liver function test abnormal [Unknown]
